FAERS Safety Report 5063171-2 (Version None)
Quarter: 2006Q3

REPORT INFORMATION
  Report Type: 
  Country: None (occurrence: None)
  Receive Date: 20060727
  Receipt Date: 20060717
  Transmission Date: 20061208
  Serious: Yes (Death, Congenital Anomaly, Other)
  Sender: FDA-Public Use
  Company Number: FR-BRISTOL-MYERS SQUIBB COMPANY-13454517

PATIENT
  Age: 39 Year
  Sex: Female

DRUGS (6)
  1. FOSINOPRIL SODIUM AND HYDROCHLOROTHIAZIDE [Suspect]
     Indication: HYPERTENSION
     Dates: end: 20030131
  2. LEVONORGESTREL AND ETHINYL ESTRADIOL [Suspect]
     Indication: CONTRACEPTION
     Dates: end: 20030131
  3. ALPRAZOLAM [Suspect]
     Indication: ANXIETY
     Dates: end: 20030131
  4. CATAPRES [Suspect]
     Dates: start: 20030201
  5. LEVOTHYROXINE SODIUM [Suspect]
     Indication: HYPOTHYROIDISM
  6. LORAZEPAM [Suspect]
     Dates: start: 20030201

REACTIONS (5)
  - ABORTION INDUCED [None]
  - CONGENITAL GENITOURINARY ABNORMALITY [None]
  - DRUG EXPOSURE DURING PREGNANCY [None]
  - OLIGOHYDRAMNIOS [None]
  - PULMONARY HYPOPLASIA [None]
